FAERS Safety Report 4813069-7 (Version None)
Quarter: 2005Q4

REPORT INFORMATION
  Report Type: 
  Country: None (occurrence: None)
  Receive Date: 20051028
  Receipt Date: 20050609
  Transmission Date: 20060501
  Serious: No
  Sender: FDA-Public Use
  Company Number: US-GLAXOSMITHKLINE-A0562007A

PATIENT
  Age: 8 Year
  Sex: Male
  Weight: 30.9 kg

DRUGS (5)
  1. ADVAIR DISKUS 100/50 [Suspect]
     Indication: ASTHMA
     Dosage: 1PUFF TWICE PER DAY
     Route: 055
     Dates: start: 20050525, end: 20050602
  2. TANAFED [Concomitant]
     Route: 065
  3. RHINOCORT [Concomitant]
     Route: 065
  4. SINGULAIR [Concomitant]
  5. MULTI-VITAMIN [Concomitant]

REACTIONS (1)
  - URTICARIA [None]
